FAERS Safety Report 18056730 (Version 1)
Quarter: 2020Q3

REPORT INFORMATION
  Report Type: Report from Study
  Country: None (occurrence: US)
  Receive Date: 20200723
  Receipt Date: 20200723
  Transmission Date: 20201103
  Serious: Yes (Death, Hospitalization, Other)
  Sender: FDA-Public Use
  Company Number: US-ABBVIE-20K-163-3292805-00

PATIENT
  Age: 70 Year
  Sex: Male
  Weight: 75.36 kg

DRUGS (10)
  1. HUMIRA [Suspect]
     Active Substance: ADALIMUMAB
     Indication: COLITIS ULCERATIVE
     Route: 058
     Dates: start: 201812, end: 20200312
  2. SIMVASTATIN. [Concomitant]
     Active Substance: SIMVASTATIN
     Indication: HYPERLIPIDAEMIA
  3. PROTANDIM [Concomitant]
     Active Substance: DIETARY SUPPLEMENT
     Indication: VITAMIN SUPPLEMENTATION
  4. CARAFATE [Concomitant]
     Active Substance: SUCRALFATE
     Indication: PRODUCT USED FOR UNKNOWN INDICATION
  5. METOPROLOL. [Concomitant]
     Active Substance: METOPROLOL
     Indication: HYPERTENSION
  6. TAMSULOSIN HCL [Concomitant]
     Active Substance: TAMSULOSIN HYDROCHLORIDE
     Indication: BENIGN PROSTATIC HYPERPLASIA
  7. VITAMIN D3 [Concomitant]
     Active Substance: CHOLECALCIFEROL
     Indication: VITAMIN SUPPLEMENTATION
  8. ASPIRIN. [Concomitant]
     Active Substance: ASPIRIN
     Indication: ANTICOAGULANT THERAPY
  9. PROBIO [Concomitant]
     Indication: PROBIOTIC THERAPY
  10. FLOMAX [Concomitant]
     Active Substance: TAMSULOSIN HYDROCHLORIDE
     Indication: BENIGN PROSTATIC HYPERPLASIA

REACTIONS (15)
  - Blood creatinine increased [Not Recovered/Not Resolved]
  - Gastrointestinal haemorrhage [Unknown]
  - Oxygen saturation abnormal [Unknown]
  - Renal failure [Not Recovered/Not Resolved]
  - Kidney infection [Unknown]
  - Acute respiratory distress syndrome [Fatal]
  - Haemoglobin decreased [Unknown]
  - Sepsis [Unknown]
  - Autoimmune disorder [Unknown]
  - Blood lactic acid increased [Unknown]
  - Abdominal pain [Unknown]
  - Drug hypersensitivity [Unknown]
  - Pneumonia [Fatal]
  - Tubulointerstitial nephritis [Unknown]
  - Blood urea increased [Not Recovered/Not Resolved]

NARRATIVE: CASE EVENT DATE: 20191204
